FAERS Safety Report 4640022-9 (Version None)
Quarter: 2005Q2

REPORT INFORMATION
  Report Type: 
  Country: None (occurrence: None)
  Receive Date: 20050415
  Receipt Date: 20050415
  Transmission Date: 20051028
  Serious: Yes (Hospitalization)
  Sender: FDA-Public Use
  Company Number: None

PATIENT
  Sex: Male
  Weight: 72 kg

DRUGS (10)
  1. FLUDARABINE [Suspect]
     Indication: STEM CELL TRANSPLANT
     Dosage: 69 MG IV Q.D.
     Route: 042
     Dates: start: 20040505, end: 20040509
  2. MELPHALAN [Suspect]
     Dosage: 320 MG IV
     Route: 042
     Dates: start: 20040510
  3. CAMPATH [Suspect]
     Dosage: 20 MG IV QD
     Route: 042
     Dates: start: 20050501, end: 20050509
  4. DIFLUCAN [Concomitant]
  5. ACYCLOVIR [Concomitant]
  6. PROGRAF [Concomitant]
  7. NORVASC [Concomitant]
  8. HYDROCHLOROTHIAZIDE [Concomitant]
  9. INSULIN [Concomitant]
  10. DAPSONE [Concomitant]

REACTIONS (6)
  - CHEST DISCOMFORT [None]
  - DEEP VEIN THROMBOSIS [None]
  - PNEUMONIA [None]
  - PULMONARY ARTERY THROMBOSIS [None]
  - PULMONARY EMBOLISM [None]
  - RESPIRATORY DISTRESS [None]
